FAERS Safety Report 6829089-7 (Version None)
Quarter: 2010Q3

REPORT INFORMATION
  Report Type: 
  Country: None (occurrence: None)
  Receive Date: 20100709
  Receipt Date: 20070303
  Transmission Date: 20110219
  Serious: No
  Sender: FDA-Public Use
  Company Number: US-PFIZER INC-2007017703

PATIENT
  Sex: Female
  Weight: 45.36 kg

DRUGS (3)
  1. CHANTIX [Suspect]
     Indication: SMOKING CESSATION THERAPY
     Route: 048
     Dates: start: 20070124
  2. INSULIN [Concomitant]
     Indication: DIABETES MELLITUS
     Dates: start: 19870101
  3. CREON [Concomitant]
     Indication: PANCREATIC DISORDER
     Dates: start: 19870101

REACTIONS (3)
  - DIZZINESS [None]
  - MALAISE [None]
  - VOMITING [None]
